FAERS Safety Report 13018868 (Version 1)
Quarter: 2016Q4

REPORT INFORMATION
  Report Type: Spontaneous
  Country: DE (occurrence: DE)
  Receive Date: 20161212
  Receipt Date: 20161212
  Transmission Date: 20170207
  Serious: Yes (Hospitalization)
  Sender: FDA-Public Use
  Company Number: DE-TEVA-716324GER

PATIENT
  Age: 51 Year
  Sex: Male

DRUGS (8)
  1. BISOPROLOL [Concomitant]
     Active Substance: BISOPROLOL
     Dosage: SINCE YEARS - UNTILL FURTHER NOTICE
     Route: 048
  2. PANTOZOL [Concomitant]
     Active Substance: PANTOPRAZOLE SODIUM
     Dosage: SINCE YEARS - UNTILL FURTHER NOTICE
     Route: 048
  3. CLOZAPIN [Suspect]
     Active Substance: CLOZAPINE
     Dosage: 650 - 300 MG
     Route: 048
     Dates: start: 2010, end: 20150712
  4. MOVICOL [Concomitant]
     Active Substance: POLYETHYLENE GLYCOL 3350\POTASSIUM CHLORIDE\SODIUM BICARBONATE\SODIUM CHLORIDE
     Dosage: 2 SACS - SINCE YEARS - UNTILL FURTHER NOTICE
  5. CLOZAPIN [Suspect]
     Active Substance: CLOZAPINE
     Dosage: 250 - 0 MG
     Route: 048
     Dates: start: 20150713, end: 20150809
  6. VALPROAT [Concomitant]
     Active Substance: VALPROATE SODIUM
     Dosage: SINCE YEARS
     Route: 048
     Dates: end: 20150719
  7. HALOPERIDOL. [Suspect]
     Active Substance: HALOPERIDOL
     Dosage: SINCE YEARS
     Route: 048
     Dates: end: 20150716
  8. SIMVASTATIN. [Concomitant]
     Active Substance: SIMVASTATIN
     Dosage: SINCE YEARS - UNTILL FURTHER NOTICE
     Route: 048

REACTIONS (2)
  - Ileus [Recovered/Resolved]
  - Subileus [Recovered/Resolved]

NARRATIVE: CASE EVENT DATE: 20150608
